FAERS Safety Report 7159879-5 (Version None)
Quarter: 2010Q4

REPORT INFORMATION
  Report Type: 
  Country: None (occurrence: None)
  Receive Date: 20101214
  Receipt Date: 20101123
  Transmission Date: 20110411
  Serious: Yes (Other)
  Sender: FDA-Public Use
  Company Number: UY-ROCHE-747707

PATIENT
  Age: 72 Year
  Sex: Female

DRUGS (1)
  1. AVASTIN [Suspect]
     Dosage: USE: MORE THAN ONE YEAR
     Route: 065

REACTIONS (1)
  - CATARACT OPERATION [None]
